FAERS Safety Report 13718082 (Version 1)
Quarter: 2017Q3

REPORT INFORMATION
  Report Type: Spontaneous
  Country: JP (occurrence: JP)
  Receive Date: 20170705
  Receipt Date: 20170705
  Transmission Date: 20171127
  Serious: Yes (Other)
  Sender: FDA-Public Use
  Company Number: JP-ABBVIE-17P-087-2028624-00

PATIENT
  Sex: Male

DRUGS (2)
  1. ZITHROMAC [Concomitant]
     Active Substance: AZITHROMYCIN DIHYDRATE
     Indication: TOOTH EXTRACTION
     Route: 048
     Dates: start: 20170605
  2. KLARICID [Suspect]
     Active Substance: CLARITHROMYCIN
     Indication: TOOTH EXTRACTION
     Dosage: UNK
     Route: 048
     Dates: start: 201706

REACTIONS (4)
  - Nausea [Not Recovered/Not Resolved]
  - Enterocolitis [Not Recovered/Not Resolved]
  - Feeling abnormal [Not Recovered/Not Resolved]
  - Abdominal pain [Not Recovered/Not Resolved]

NARRATIVE: CASE EVENT DATE: 201706
